FAERS Safety Report 5288949-1 (Version None)
Quarter: 2007Q2

REPORT INFORMATION
  Report Type: 
  Country: None (occurrence: None)
  Receive Date: 20070405
  Receipt Date: 20070328
  Transmission Date: 20071010
  Serious: Yes (Other)
  Sender: FDA-Public Use
  Company Number: JP-PFIZER INC-2007003288

PATIENT
  Sex: Male
  Weight: 80.7 kg

DRUGS (5)
  1. NORVASC [Suspect]
     Indication: HYPERTENSION
     Route: 048
  2. LIPITOR [Suspect]
     Indication: HYPERCHOLESTEROLAEMIA
     Route: 048
  3. ALLOPURINOL [Suspect]
     Indication: HYPERURICAEMIA
     Route: 048
  4. ETHYL ICOSAPENTATE [Suspect]
     Indication: HYPERLIPIDAEMIA
     Route: 048
  5. BLOPRESS [Suspect]
     Indication: HYPERTENSION
     Route: 048

REACTIONS (1)
  - PROTEIN URINE [None]
